FAERS Safety Report 12260852 (Version 1)
Quarter: 2016Q2

REPORT INFORMATION
  Report Type: Spontaneous
  Country: US (occurrence: US)
  Receive Date: 20160412
  Receipt Date: 20160412
  Transmission Date: 20160815
  Serious: Yes (Other)
  Sender: FDA-Public Use
  Company Number: ADR-2015-01492

PATIENT
  Age: 65 Year
  Sex: Male

DRUGS (4)
  1. OTHER UNKNOWN MEDICATIONS [Suspect]
     Active Substance: UNSPECIFIED INGREDIENT
     Dosage: 0.81MG/DAY
     Route: 037
     Dates: end: 20150730
  2. MORPHINE [Suspect]
     Active Substance: MORPHINE
     Dosage: 5.45MG/DAY
     Route: 037
     Dates: end: 20150730
  3. BACLOFEN. [Suspect]
     Active Substance: BACLOFEN
     Dosage: 0.55MCG/DAY
     Route: 037
     Dates: end: 20150730
  4. MARCAINE [Suspect]
     Active Substance: BUPIVACAINE HYDROCHLORIDE
     Dosage: 2.72MCG/DAY
     Route: 037
     Dates: end: 20150730

REACTIONS (3)
  - Drug dose omission [None]
  - Device alarm issue [None]
  - Drug withdrawal syndrome [Unknown]
